FAERS Safety Report 4328663-X (Version None)
Quarter: 2004Q1

REPORT INFORMATION
  Report Type: 
  Country: None (occurrence: None)
  Receive Date: 20040324
  Receipt Date: 20040308
  Transmission Date: 20041129
  Serious: Yes (Hospitalization)
  Sender: FDA-Public Use
  Company Number: 234639

PATIENT
  Age: 21 Year
  Sex: Male
  Weight: 71 kg

DRUGS (7)
  1. NOVOSEVEN [Suspect]
     Indication: ABDOMINAL INJURY
     Dosage: IN TOTAL 4.8 MG, INTRAVENOUS
     Route: 042
     Dates: start: 20030906, end: 20030906
  2. NOVOSEVEN [Suspect]
     Indication: ABDOMINAL INJURY
     Dosage: IN TOTAL 4.8 MG, INTRAVENOUS
     Route: 042
     Dates: start: 20030907, end: 20030907
  3. AUGMENTIN [Concomitant]
  4. ACUPAN [Concomitant]
  5. PARACETAMOL (PARACETAMOL0 [Concomitant]
  6. RISPERDAL [Concomitant]
  7. NEXIUM [Concomitant]

REACTIONS (1)
  - DEEP VEIN THROMBOSIS [None]
